FAERS Safety Report 9114085 (Version 1)
Quarter: 2013Q1

REPORT INFORMATION
  Report Type: Spontaneous
  Country: US (occurrence: None)
  Receive Date: 20130220
  Receipt Date: 20130220
  Transmission Date: 20140127
  Serious: Yes (Hospitalization)
  Sender: FDA-Public Use
  Company Number: None

PATIENT
  Age: 75 Year
  Sex: Male
  Weight: 70.4 kg

DRUGS (1)
  1. WARFARIN [Suspect]
     Indication: STENT PLACEMENT
     Route: 048
     Dates: start: 20120618, end: 20130214

REACTIONS (1)
  - Gastric haemorrhage [None]
